FAERS Safety Report 12855434 (Version 1)
Quarter: 2016Q4

REPORT INFORMATION
  Report Type: Spontaneous
  Country: US (occurrence: US)
  Receive Date: 20161017
  Receipt Date: 20161017
  Transmission Date: 20170207
  Serious: No
  Sender: FDA-Public Use
  Company Number: US-TAKEDA-2016TUS018580

PATIENT
  Age: 48 Year
  Sex: Male
  Weight: 104.31 kg

DRUGS (5)
  1. DEXILANT [Suspect]
     Active Substance: DEXLANSOPRAZOLE
     Indication: GASTROOESOPHAGEAL REFLUX DISEASE
     Dosage: 60 MG, QD
     Route: 048
     Dates: start: 2015
  2. DEXILANT [Suspect]
     Active Substance: DEXLANSOPRAZOLE
     Indication: DYSPEPSIA
  3. ATENOLOL. [Concomitant]
     Active Substance: ATENOLOL
     Indication: ANGINA PECTORIS
     Dosage: UNK, QD
     Route: 048
  4. ATORVASTATIN [Concomitant]
     Active Substance: ATORVASTATIN
     Indication: BLOOD CHOLESTEROL INCREASED
     Dosage: UNK, QD
     Route: 048
  5. ASPIRIN                            /00002701/ [Concomitant]
     Active Substance: ASPIRIN
     Dosage: UNK, QD
     Route: 048

REACTIONS (1)
  - Drug effect decreased [Recovered/Resolved]

NARRATIVE: CASE EVENT DATE: 201609
